FAERS Safety Report 5635128-1 (Version None)
Quarter: 2008Q1

REPORT INFORMATION
  Report Type: 
  Country: None (occurrence: None)
  Receive Date: 20080221
  Receipt Date: 20080221
  Transmission Date: 20080703
  Serious: Yes (Hospitalization)
  Sender: FDA-Public Use
  Company Number: None

PATIENT
  Sex: Female
  Weight: 108 kg

DRUGS (4)
  1. BEVACIZUMAB (RHUMAB VEGF) [Suspect]
     Dosage: 1620 MG
     Dates: end: 20080128
  2. LEUCOVORIN CALCIUM [Suspect]
     Dosage: 2640 MG
     Dates: end: 20080128
  3. ELOXATIN [Suspect]
     Dosage: 561 MG
     Dates: end: 20080128
  4. FLUOROURACIL [Suspect]
     Dosage: 18480 MG
     Dates: end: 20080128

REACTIONS (1)
  - COLONIC OBSTRUCTION [None]
